FAERS Safety Report 4625819-3 (Version None)
Quarter: 2005Q2

REPORT INFORMATION
  Report Type: 
  Country: None (occurrence: None)
  Receive Date: 20050404
  Receipt Date: 20050323
  Transmission Date: 20051028
  Serious: Yes (Hospitalization)
  Sender: FDA-Public Use
  Company Number: US-BRISTOL-MYERS SQUIBB COMPANY-12914628

PATIENT
  Age: 72 Year
  Sex: Female

DRUGS (2)
  1. POTASSIUM CHLORIDE [Suspect]
     Indication: MINERAL SUPPLEMENTATION
  2. PRINIVIL [Suspect]
     Indication: HYPERTENSION
     Route: 048

REACTIONS (6)
  - ABDOMINAL PAIN [None]
  - HAEMODIALYSIS [None]
  - HYPERKALAEMIA [None]
  - NAUSEA [None]
  - TREMOR [None]
  - VOMITING [None]
